FAERS Safety Report 20157650 (Version 1)
Quarter: 2021Q4

REPORT INFORMATION
  Report Type: Spontaneous
  Country: DE (occurrence: DE)
  Receive Date: 20211207
  Receipt Date: 20211207
  Transmission Date: 20220303
  Serious: Yes (Other)
  Sender: FDA-Public Use
  Company Number: DE-LUNDBECK-DKLU3041543

PATIENT
  Sex: Female

DRUGS (3)
  1. CITALOPRAM HYDROBROMIDE [Suspect]
     Active Substance: CITALOPRAM HYDROBROMIDE
     Indication: Product used for unknown indication
     Dosage: 20 MG, QD
     Route: 065
  2. ESCITALOPRAM OXALATE [Suspect]
     Active Substance: ESCITALOPRAM OXALATE
     Indication: Product used for unknown indication
     Dosage: 20 MG, QD
     Route: 065
  3. BRINTELLIX [Suspect]
     Active Substance: VORTIOXETINE HYDROBROMIDE
     Indication: Product used for unknown indication
     Dosage: 10 MG, QD
     Route: 065

REACTIONS (17)
  - Blindness [Unknown]
  - Drug intolerance [Unknown]
  - Hypoaesthesia [Unknown]
  - Condition aggravated [Unknown]
  - Feeling abnormal [Unknown]
  - Head discomfort [Unknown]
  - Multiple allergies [Unknown]
  - Anaphylactic shock [Unknown]
  - Dizziness [Unknown]
  - Muscle spasms [Unknown]
  - Dyspnoea [Unknown]
  - Tinnitus [Unknown]
  - Headache [Unknown]
  - Migraine [Unknown]
  - Dysphagia [Unknown]
  - Nausea [Unknown]
  - Therapeutic product effect decreased [Unknown]
